FAERS Safety Report 5068330-0 (Version None)
Quarter: 2006Q3

REPORT INFORMATION
  Report Type: 
  Country: None (occurrence: None)
  Receive Date: 20060802
  Receipt Date: 20050805
  Transmission Date: 20061208
  Serious: No
  Sender: FDA-Public Use
  Company Number: US-BRISTOL-MYERS SQUIBB COMPANY-13064241

PATIENT
  Age: 73 Year
  Sex: Female
  Weight: 70 kg

DRUGS (6)
  1. COUMADIN [Suspect]
     Indication: ATRIAL FIBRILLATION
     Dosage: DOSE:  2.5 MG DAILY (1/2 5 MG TABLET) FOR SIX DAYS AND 5 MG ON THE SEVENTH DAY
     Route: 048
  2. VERAPAMIL [Concomitant]
  3. ALTACE [Concomitant]
  4. LASIX [Concomitant]
  5. POTASSIUM [Concomitant]
  6. CORDARONE [Concomitant]

REACTIONS (1)
  - ERYTHEMA [None]
